FAERS Safety Report 4865441-7 (Version None)
Quarter: 2005Q4

REPORT INFORMATION
  Report Type: 
  Country: None (occurrence: None)
  Receive Date: 20051223
  Receipt Date: 20051102
  Transmission Date: 20060501
  Serious: Yes (Other)
  Sender: FDA-Public Use
  Company Number: US-ROCHE-423556

PATIENT
  Age: 64 Year
  Sex: Female

DRUGS (2)
  1. BONIVA [Suspect]
     Indication: OSTEOPOROSIS
     Route: 048
     Dates: start: 20051102, end: 20051115
  2. STATIN NOS [Concomitant]

REACTIONS (6)
  - BACK PAIN [None]
  - CHEST PAIN [None]
  - MYALGIA [None]
  - TACHYCARDIA [None]
  - TREATMENT NONCOMPLIANCE [None]
  - URINARY TRACT INFECTION [None]
